FAERS Safety Report 5340412-5 (Version None)
Quarter: 2007Q2

REPORT INFORMATION
  Report Type: 
  Country: None (occurrence: None)
  Receive Date: 20070405
  Receipt Date: 20061220
  Transmission Date: 20071010
  Serious: No
  Sender: FDA-Public Use
  Company Number: US200612003676

PATIENT
  Sex: Female

DRUGS (2)
  1. CYMBALTA [Suspect]
     Indication: DEPRESSION
     Dosage: 60 MG
     Dates: start: 20050101
  2. AMBIEN [Concomitant]

REACTIONS (1)
  - TINNITUS [None]
